FAERS Safety Report 25182218 (Version 1)
Quarter: 2025Q2

REPORT INFORMATION
  Report Type: Spontaneous
  Country: US (occurrence: US)
  Receive Date: 20250410
  Receipt Date: 20250410
  Transmission Date: 20250717
  Serious: No
  Sender: KINIKSA PHARMACEUTICALS
  Company Number: US-Kiniksa Pharmaceuticals Ltd.-2024KPU000347

PATIENT
  Age: 66 Year
  Sex: Female

DRUGS (2)
  1. ARCALYST [Suspect]
     Active Substance: RILONACEPT
     Indication: Pericarditis
     Dates: start: 20240312, end: 20240312
  2. ARCALYST [Suspect]
     Active Substance: RILONACEPT
     Dosage: 220 MG VIAL?2 DOSE

REACTIONS (11)
  - Product distribution issue [Unknown]
  - Product dose omission issue [Unknown]
  - Injection site erythema [Unknown]
  - Injection site rash [Unknown]
  - Injection site pain [Unknown]
  - Injection site mass [Recovering/Resolving]
  - Device use issue [Unknown]
  - Product dose omission issue [Unknown]
  - Injection site erythema [Not Recovered/Not Resolved]
  - Injection site haemorrhage [Unknown]
  - Injection site bruising [Recovering/Resolving]

NARRATIVE: CASE EVENT DATE: 20240319
